FAERS Safety Report 5396431-6 (Version None)
Quarter: 2007Q3

REPORT INFORMATION
  Report Type: 
  Country: None (occurrence: None)
  Receive Date: 20070725
  Receipt Date: 20070711
  Transmission Date: 20080115
  Serious: Yes (Hospitalization)
  Sender: FDA-Public Use
  Company Number: US-ELI_LILLY_AND_COMPANY-US200707002883

PATIENT
  Age: 57 Year
  Sex: Female

DRUGS (1)
  1. FORTEO [Suspect]
     Indication: PROPHYLAXIS
     Dates: start: 20060701

REACTIONS (3)
  - ANAEMIA [None]
  - GASTRECTOMY [None]
  - LOWER LIMB FRACTURE [None]
